FAERS Safety Report 14406213 (Version 1)
Quarter: 2018Q1

REPORT INFORMATION
  Report Type: Report from Study
  Country: US (occurrence: US)
  Receive Date: 20180118
  Receipt Date: 20180118
  Transmission Date: 20180509
  Serious: Yes (Other)
  Sender: FDA-Public Use
  Company Number: US-GILEAD-2018-0315949

PATIENT
  Age: 58 Year
  Sex: Male

DRUGS (1)
  1. LEDIPASVIR/SOFOSBUVIR [Suspect]
     Active Substance: LEDIPASVIR\SOFOSBUVIR
     Indication: CHRONIC HEPATITIS C
     Dosage: 1 DF, QD
     Route: 048
     Dates: start: 20141001, end: 20141201

REACTIONS (5)
  - Chronic hepatitis C [Unknown]
  - Hepatitis C [Unknown]
  - Hepatitis C virus test positive [Unknown]
  - Hepatitis C antibody positive [Unknown]
  - Drug ineffective [Unknown]
